FAERS Safety Report 9364859 (Version 3)
Quarter: 2013Q3

REPORT INFORMATION
  Report Type: Spontaneous
  Country: US (occurrence: US)
  Receive Date: 20130624
  Receipt Date: 20130726
  Transmission Date: 20140515
  Serious: Yes (Hospitalization, Disabling, Other)
  Sender: FDA-Public Use
  Company Number: US-GLAXOSMITHKLINE-A1027829A

PATIENT
  Age: 63 Year
  Sex: Male

DRUGS (9)
  1. VOTRIENT [Suspect]
     Indication: OESOPHAGEAL CARCINOMA
     Dosage: 800MG PER DAY
     Route: 048
     Dates: start: 20130529
  2. HYDROMORPHONE [Concomitant]
  3. INSULIN [Concomitant]
  4. LANSOPRAZOLE [Concomitant]
  5. SIMVASTATIN [Concomitant]
  6. PREDNISONE [Concomitant]
  7. NOVASTAN [Concomitant]
  8. LOSARTAN [Concomitant]
  9. ZOFRAN [Concomitant]

REACTIONS (4)
  - Pneumonia [Recovering/Resolving]
  - Nausea [Unknown]
  - Abdominal pain [Unknown]
  - Chest pain [Recovering/Resolving]
